FAERS Safety Report 4995166-9 (Version None)
Quarter: 2006Q2

REPORT INFORMATION
  Report Type: 
  Country: None (occurrence: None)
  Receive Date: 20060508
  Receipt Date: 20050309
  Transmission Date: 20061013
  Serious: Yes (Death, Hospitalization)
  Sender: FDA-Public Use
  Company Number: US-MERCK-0503USA01740

PATIENT
  Age: 83 Year
  Sex: Female
  Weight: 61 kg

DRUGS (1)
  1. VIOXX [Suspect]
     Indication: ARTHRITIS
     Route: 048
     Dates: start: 20010101, end: 20040101

REACTIONS (10)
  - CARDIAC FAILURE CONGESTIVE [None]
  - CEREBROVASCULAR ACCIDENT [None]
  - COMA [None]
  - CONTUSION [None]
  - EXCORIATION [None]
  - MIOSIS [None]
  - MYOCARDIAL INFARCTION [None]
  - TRANSIENT ISCHAEMIC ATTACK [None]
  - UNRESPONSIVE TO PAIN STIMULI [None]
  - VOMITING [None]
